FAERS Safety Report 4808467-1 (Version None)
Quarter: 2005Q4

REPORT INFORMATION
  Report Type: 
  Country: None (occurrence: None)
  Receive Date: 20051025
  Receipt Date: 20050905
  Transmission Date: 20060501
  Serious: Yes (Other)
  Sender: FDA-Public Use
  Company Number: JP-BRISTOL-MYERS SQUIBB COMPANY-13155254

PATIENT
  Age: 21 Year
  Sex: Female

DRUGS (8)
  1. CYCLOPHOSPHAMIDE [Suspect]
     Indication: ACUTE MYELOID LEUKAEMIA
     Route: 042
  2. BUSULFAN [Suspect]
     Indication: ACUTE MYELOID LEUKAEMIA
     Route: 048
  3. CYCLOSPORINE [Concomitant]
  4. METHOTREXATE [Concomitant]
  5. VALPROATE SODIUM [Concomitant]
  6. FLUCONAZOLE [Concomitant]
  7. CIPROFLOXACIN [Concomitant]
  8. ACYCLOVIR [Concomitant]

REACTIONS (1)
  - VENOOCCLUSIVE LIVER DISEASE [None]
